FAERS Safety Report 14681293 (Version 2)
Quarter: 2018Q2

REPORT INFORMATION
  Report Type: Spontaneous
  Country: US (occurrence: US)
  Receive Date: 20180326
  Receipt Date: 20180523
  Transmission Date: 20180711
  Serious: No
  Sender: FDA-Public Use
  Company Number: US-PFIZER INC-2018118749

PATIENT
  Age: 39 Year
  Sex: Male

DRUGS (1)
  1. EUCRISA [Suspect]
     Active Substance: CRISABOROLE
     Dosage: UNK ((ABOUT TWO MONTHS AGO AND USED IT FOR ABOUT 3 WEEKS ON HIS FEET)
     Dates: start: 2018, end: 2018

REACTIONS (3)
  - Localised infection [Unknown]
  - Tinea pedis [Unknown]
  - Condition aggravated [Unknown]

NARRATIVE: CASE EVENT DATE: 2018
